FAERS Safety Report 9663723 (Version 1)
Quarter: 2013Q4

REPORT INFORMATION
  Report Type: Spontaneous
  Country: US (occurrence: None)
  Receive Date: 20131030
  Receipt Date: 20131030
  Transmission Date: 20140711
  Serious: Yes (Hospitalization)
  Sender: FDA-Public Use
  Company Number: None

PATIENT
  Age: 34 Year
  Sex: Female

DRUGS (3)
  1. TRAMADOL [Suspect]
     Indication: BACK PAIN
     Dosage: 4 TIMES A DAY
     Route: 048
     Dates: start: 201212
  2. TRAMADOL [Suspect]
     Indication: INTERVERTEBRAL DISC DEGENERATION
     Dosage: 4 TIMES A DAY
     Route: 048
     Dates: start: 201212
  3. PHENTERMINE [Suspect]
     Indication: WEIGHT CONTROL
     Route: 048
     Dates: start: 201309

REACTIONS (1)
  - Convulsion [None]
